FAERS Safety Report 9881924 (Version 2)
Quarter: 2014Q1

REPORT INFORMATION
  Report Type: Report from Study
  Country: BR (occurrence: BR)
  Receive Date: 20140207
  Receipt Date: 20140320
  Transmission Date: 20141002
  Serious: Yes (Hospitalization)
  Sender: FDA-Public Use
  Company Number: BR-ASTRAZENECA-2014SE08206

PATIENT
  Age: 22850 Day
  Sex: Female
  Weight: 89.7 kg

DRUGS (1)
  1. AZD6140 [Suspect]
     Indication: PERIPHERAL ARTERIAL OCCLUSIVE DISEASE
     Route: 048
     Dates: start: 20131114, end: 20131217

REACTIONS (1)
  - Renal failure acute [Recovered/Resolved]
